FAERS Safety Report 5609429-7 (Version None)
Quarter: 2008Q1

REPORT INFORMATION
  Report Type: 
  Country: None (occurrence: None)
  Receive Date: 20080131
  Receipt Date: 20080121
  Transmission Date: 20080703
  Serious: Yes (Other)
  Sender: FDA-Public Use
  Company Number: FR-ROCHE-543029

PATIENT
  Age: 42 Year
  Sex: Male

DRUGS (4)
  1. FUZEON [Suspect]
     Indication: DRUG USE FOR UNKNOWN INDICATION
     Dosage: FORM: INJECTABLE SOLUTION
     Route: 058
     Dates: start: 20070517
  2. NORVIR [Suspect]
     Indication: HIV INFECTION
     Route: 048
     Dates: start: 20070517
  3. REYATAZ [Suspect]
     Indication: HIV INFECTION
     Route: 048
     Dates: start: 20070517
  4. TRUVADA [Suspect]
     Indication: HIV INFECTION
     Dosage: STRENGTH: 200 MG/245 MG
     Route: 048
     Dates: start: 20070517

REACTIONS (2)
  - INSOMNIA [None]
  - IRRITABILITY [None]
